FAERS Safety Report 11538786 (Version 1)
Quarter: 2015Q3

REPORT INFORMATION
  Report Type: Spontaneous
  Country: IL (occurrence: None)
  Receive Date: 20150921
  Receipt Date: 20150921
  Transmission Date: 20151125
  Serious: Yes (Hospitalization)
  Sender: FDA-Public Use
  Company Number: 2015IL0519

PATIENT
  Age: 3 Year
  Sex: Male

DRUGS (1)
  1. KINERET [Suspect]
     Active Substance: ANAKINRA
     Indication: CHRONIC GRANULOMATOUS DISEASE
     Route: 058

REACTIONS (3)
  - Diarrhoea [None]
  - General physical health deterioration [None]
  - Arrhythmia [None]
